FAERS Safety Report 5318350-3 (Version None)
Quarter: 2007Q2

REPORT INFORMATION
  Report Type: 
  Country: None (occurrence: None)
  Receive Date: 20070507
  Receipt Date: 20070423
  Transmission Date: 20071010
  Serious: Yes (Hospitalization)
  Sender: FDA-Public Use
  Company Number: NL-SHR-NL-2006-032642

PATIENT
  Age: 55 Year
  Sex: Female

DRUGS (9)
  1. BETASERON [Suspect]
     Indication: RELAPSING-REMITTING MULTIPLE SCLEROSIS
     Dosage: 8 OR 16 IU, EVERY 2D
     Route: 058
     Dates: start: 20050314
  2. ESTRADIOL [Concomitant]
     Indication: MENOPAUSE
     Dosage: 20 MG, 1X/MONTH
     Route: 058
     Dates: start: 20000101
  3. PLAVIX [Concomitant]
     Indication: CORONARY ARTERY STENOSIS
     Dosage: 75 MG, 1X/DAY
     Route: 048
     Dates: start: 20050902
  4. SIMVASTATIN [Concomitant]
     Dosage: 40 MG, 1X/DAY
     Route: 048
     Dates: start: 20060203
  5. ASAFLOW [Concomitant]
     Indication: CORONARY ARTERY STENOSIS
     Dosage: 160 MG, 1X/DAY
     Route: 048
     Dates: start: 20060203
  6. TRIAMTERENE AND HYDROCHLOROTHIAZIDE [Concomitant]
     Indication: HYPERTENSION
     Dosage: 50/25 MG, 1X/DAY
     Route: 048
     Dates: start: 19710101
  7. SOTALOL HCL [Concomitant]
     Indication: TACHYCARDIA
     Dosage: 40 MG, 2X/DAY
     Route: 048
     Dates: start: 20050425
  8. TRAMADOL HCL [Concomitant]
     Dosage: 50 MG, 2X/DAY
     Route: 048
     Dates: start: 20050527
  9. PREGABALIN [Concomitant]
     Indication: NEURALGIA
     Dosage: 75 MG, 3X/DAY
     Route: 048
     Dates: start: 20050614

REACTIONS (1)
  - SMALL INTESTINAL PERFORATION [None]
